FAERS Safety Report 14747863 (Version 1)
Quarter: 2018Q2

REPORT INFORMATION
  Report Type: Spontaneous
  Country: JP (occurrence: JP)
  Receive Date: 20180411
  Receipt Date: 20180411
  Transmission Date: 20180711
  Serious: Yes (Other)
  Sender: FDA-Public Use
  Company Number: JP-MYLANLABS-2018M1022017

PATIENT
  Sex: Female

DRUGS (2)
  1. CARBOPLATIN. [Suspect]
     Active Substance: CARBOPLATIN
     Indication: CERVIX CARCINOMA RECURRENT
     Dosage: UNK UNK, CYCLE
     Route: 065
  2. PACLITAXEL. [Concomitant]
     Active Substance: PACLITAXEL
     Indication: CERVIX CARCINOMA RECURRENT
     Dosage: UNK UNK, CYCLE
     Route: 065

REACTIONS (6)
  - Hyperhidrosis [Unknown]
  - Feeling hot [Unknown]
  - Oxygen saturation decreased [Unknown]
  - Dysphoria [Unknown]
  - Blood pressure decreased [Unknown]
  - Depressed level of consciousness [Unknown]
